FAERS Safety Report 4865811-7 (Version None)
Quarter: 2005Q4

REPORT INFORMATION
  Report Type: 
  Country: None (occurrence: None)
  Receive Date: 20051220
  Receipt Date: 20051205
  Transmission Date: 20060501
  Serious: Yes (Hospitalization)
  Sender: FDA-Public Use
  Company Number: 2005-01394

PATIENT
  Age: 56 Year
  Sex: Female
  Weight: 55 kg

DRUGS (5)
  1. VELCADE [Suspect]
     Indication: MULTIPLE MYELOMA
     Dosage: SEE IMAGE
     Route: 042
     Dates: start: 20050207, end: 20050324
  2. VELCADE [Suspect]
     Indication: MULTIPLE MYELOMA
     Dosage: SEE IMAGE
     Route: 042
     Dates: start: 20050411, end: 20050623
  3. GABAPENTIN [Concomitant]
  4. BENEXOL (PYRIDOXINE HYDROCHLORIDE, THIAMINE HYDRCHLORIDE) [Concomitant]
  5. OMEPRAZOLE [Concomitant]

REACTIONS (1)
  - CHOLELITHIASIS [None]
